FAERS Safety Report 25798733 (Version 1)
Quarter: 2025Q3

REPORT INFORMATION
  Report Type: Spontaneous
  Country: TR (occurrence: TR)
  Receive Date: 20250913
  Receipt Date: 20250913
  Transmission Date: 20251021
  Serious: Yes (Other)
  Sender: ACCORD
  Company Number: TR-MLMSERVICE-20250827-PI626694-00101-1

PATIENT
  Age: 29 Year
  Sex: Female

DRUGS (12)
  1. CISPLATIN [Suspect]
     Active Substance: CISPLATIN
     Indication: Diffuse large B-cell lymphoma
  2. CYTARABINE [Concomitant]
     Active Substance: CYTARABINE
     Indication: Diffuse large B-cell lymphoma
  3. DEXAMETHASONE [Concomitant]
     Active Substance: DEXAMETHASONE
     Indication: Diffuse large B-cell lymphoma
  4. RITUXIMAB [Concomitant]
     Active Substance: RITUXIMAB
     Indication: Diffuse large B-cell lymphoma
  5. DEXAMETHASONE [Concomitant]
     Active Substance: DEXAMETHASONE
     Indication: Haemophagocytic lymphohistiocytosis
  6. CYTARABINE [Concomitant]
     Active Substance: CYTARABINE
     Indication: Haemophagocytic lymphohistiocytosis
  7. DEXAMETHASONE [Concomitant]
     Active Substance: DEXAMETHASONE
     Indication: Malignant neoplasm progression
  8. CYTARABINE [Concomitant]
     Active Substance: CYTARABINE
     Indication: Malignant neoplasm progression
  9. CISPLATIN [Suspect]
     Active Substance: CISPLATIN
     Indication: Malignant neoplasm progression
  10. RITUXIMAB [Concomitant]
     Active Substance: RITUXIMAB
     Indication: Malignant neoplasm progression
  11. CISPLATIN [Suspect]
     Active Substance: CISPLATIN
     Indication: Haemophagocytic lymphohistiocytosis
  12. RITUXIMAB [Concomitant]
     Active Substance: RITUXIMAB
     Indication: Haemophagocytic lymphohistiocytosis

REACTIONS (2)
  - Cardiomyopathy [Unknown]
  - Pericardial effusion [Unknown]
